FAERS Safety Report 7396126-3 (Version None)
Quarter: 2011Q2

REPORT INFORMATION
  Report Type: 
  Country: None (occurrence: None)
  Receive Date: 20110406
  Receipt Date: 20110325
  Transmission Date: 20111010
  Serious: Yes (Hospitalization, Other)
  Sender: FDA-Public Use
  Company Number: US-ELI_LILLY_AND_COMPANY-US201103008292

PATIENT
  Sex: Female

DRUGS (3)
  1. LANTUS [Concomitant]
     Dosage: 19 U, EACH EVENING
  2. HUMALOG [Suspect]
     Dosage: 12 U, TID
  3. HUMALOG [Suspect]
     Indication: DIABETES MELLITUS
     Dosage: 12 U, TID
     Route: 058

REACTIONS (7)
  - VISION BLURRED [None]
  - CARDIAC PACEMAKER INSERTION [None]
  - WRONG DRUG ADMINISTERED [None]
  - TREMOR [None]
  - BLOOD GLUCOSE INCREASED [None]
  - LOSS OF CONSCIOUSNESS [None]
  - NERVOUSNESS [None]
